FAERS Safety Report 7174211-9 (Version None)
Quarter: 2010Q4

REPORT INFORMATION
  Report Type: 
  Country: None (occurrence: None)
  Receive Date: 20101202
  Receipt Date: 20101124
  Transmission Date: 20110411
  Serious: Yes (Hospitalization, Other)
  Sender: FDA-Public Use
  Company Number: 2006-01-1633

PATIENT
  Age: 77 Year
  Sex: Male

DRUGS (7)
  1. DIPROSONE [Suspect]
     Indication: DRUG ERUPTION
     Dosage: TOP
     Route: 061
     Dates: start: 20051123
  2. GURONSAN (GURONSAN 00818401/) [Suspect]
     Indication: ASTHENIA
     Dosage: PO
     Route: 048
  3. LOCOID [Suspect]
     Indication: RASH
     Dosage: TOP
     Route: 061
     Dates: start: 20051109, end: 20051123
  4. LAMISIL [Suspect]
     Indication: RASH
     Dosage: TOP
     Route: 061
     Dates: start: 20051109, end: 20051123
  5. SOLUPFRED (PREDNISOLONE SODIUM SULFOBENZOATE) [Suspect]
     Indication: RASH
     Dosage: PO
     Route: 048
     Dates: start: 20051201, end: 20051228
  6. ACETAMINOPHEN [Concomitant]
  7. EBASTINE [Concomitant]

REACTIONS (4)
  - DERMATITIS PSORIASIFORM [None]
  - PARAKERATOSIS [None]
  - TOXIC SKIN ERUPTION [None]
  - VASCULITIS [None]
